FAERS Safety Report 9957823 (Version 1)
Quarter: 2014Q1

REPORT INFORMATION
  Report Type: Report from Study
  Country: US (occurrence: US)
  Receive Date: 20140304
  Receipt Date: 20140304
  Transmission Date: 20141002
  Serious: No
  Sender: FDA-Public Use
  Company Number: US-ABBVIE-13P-163-1095861-00

PATIENT
  Age: 31 Year
  Sex: Male
  Weight: 77.18 kg

DRUGS (6)
  1. HUMIRA [Suspect]
     Indication: CROHN^S DISEASE
     Dosage: LOADING DOSE
     Route: 058
     Dates: start: 20130507, end: 20130507
  2. HUMIRA [Suspect]
     Route: 058
     Dates: start: 20130521, end: 20130521
  3. AMBIEN [Concomitant]
     Indication: INSOMNIA
  4. FOLIC ACID [Concomitant]
     Indication: VITAMIN SUPPLEMENTATION
  5. IMURAN [Concomitant]
     Indication: CROHN^S DISEASE
  6. SULFASALAZINE [Concomitant]
     Indication: PAIN

REACTIONS (2)
  - Injection site bruising [Recovered/Resolved]
  - Injection site pruritus [Not Recovered/Not Resolved]
